FAERS Safety Report 17584861 (Version 1)
Quarter: 2020Q1

REPORT INFORMATION
  Report Type: Spontaneous
  Country: US (occurrence: US)
  Receive Date: 20200326
  Receipt Date: 20200326
  Transmission Date: 20200409
  Serious: Yes (Other)
  Sender: FDA-Public Use
  Company Number: US-DRREDDYS-USA/USA/20/0120923

PATIENT
  Age: 16 Year
  Sex: Male

DRUGS (2)
  1. ZENATANE [Suspect]
     Active Substance: ISOTRETINOIN
     Indication: PRODUCT USED FOR UNKNOWN INDICATION
     Dosage: RMA ISSUE DATE: 11/18/2019 3:11:36 PM ZENATANE 30 MG; RMA ISSUE DATE: 12/11/2019 5:10:51 PM ZENATANE
     Route: 048
  2. ZENATANE [Suspect]
     Active Substance: ISOTRETINOIN
     Dosage: RMA ISSUE DATE: 1/23/2020 5:17:47 PM ZENATANE 40 MG
     Route: 048

REACTIONS (2)
  - Haematochezia [Unknown]
  - Dry skin [Unknown]
